FAERS Safety Report 4661052-7 (Version None)
Quarter: 2005Q2

REPORT INFORMATION
  Report Type: 
  Country: None (occurrence: None)
  Receive Date: 20050511
  Receipt Date: 20050426
  Transmission Date: 20051028
  Serious: Yes (Death, Hospitalization)
  Sender: FDA-Public Use
  Company Number: P200500007

PATIENT
  Age: 55 Year
  Sex: Male

DRUGS (2)
  1. PLENAXIS [Suspect]
     Indication: PROSTATE CANCER
     Dosage: 100 MG, SINGLE, INTRAMUSCULAR
     Route: 030
     Dates: start: 20050204, end: 20050204
  2. MONOPRIL [Concomitant]

REACTIONS (5)
  - ASTHENIA [None]
  - DISEASE PROGRESSION [None]
  - HAEMATURIA [None]
  - SPINAL CORD COMPRESSION [None]
  - URINARY RETENTION [None]
